FAERS Safety Report 7926792-2 (Version None)
Quarter: 2011Q4

REPORT INFORMATION
  Report Type: 
  Country: None (occurrence: None)
  Receive Date: 20111118
  Receipt Date: 20111111
  Transmission Date: 20120403
  Serious: Yes (Other)
  Sender: FDA-Public Use
  Company Number: CZ-JNJFOC-20110803327

PATIENT
  Sex: Female

DRUGS (1)
  1. INFLIXIMAB, RECOMBINANT [Suspect]
     Indication: INFLAMMATORY BOWEL DISEASE
     Route: 042

REACTIONS (4)
  - PREMATURE LABOUR [None]
  - MATERNAL CONDITION AFFECTING FOETUS [None]
  - MATERNAL EXPOSURE DURING PREGNANCY [None]
  - HYPERTENSION [None]
